FAERS Safety Report 23960636 (Version 1)
Quarter: 2024Q2

REPORT INFORMATION
  Report Type: Spontaneous
  Country: US (occurrence: US)
  Receive Date: 20240611
  Receipt Date: 20240611
  Transmission Date: 20240716
  Serious: No
  Sender: FDA-Public Use
  Company Number: US-AMGEN-USASP2024110701

PATIENT
  Age: 69 Year
  Sex: Female

DRUGS (2)
  1. TEPEZZA [Suspect]
     Active Substance: TEPROTUMUMAB-TRBW
     Indication: Product used for unknown indication
     Dosage: 500 MILLIGRAM, FIRST INFUSION
     Route: 042
  2. TEPEZZA [Suspect]
     Active Substance: TEPROTUMUMAB-TRBW
     Dosage: 1250 MILLIGRAM (1625MG, WASTED 375MG, SECOND INFUSION)
     Route: 042

REACTIONS (7)
  - Dysgeusia [Unknown]
  - Chest discomfort [Unknown]
  - Nausea [Unknown]
  - Dyspnoea [Unknown]
  - Anxiety [Unknown]
  - Skin warm [Unknown]
  - Incorrect dose administered [Unknown]

NARRATIVE: CASE EVENT DATE: 20240603
